FAERS Safety Report 8152269-8 (Version None)
Quarter: 2012Q1

REPORT INFORMATION
  Report Type: 
  Country: None (occurrence: None)
  Receive Date: 20120221
  Receipt Date: 20120213
  Transmission Date: 20120608
  Serious: Yes (Other)
  Sender: FDA-Public Use
  Company Number: US-BAYER-2010-006638

PATIENT
  Age: 28 Year
  Sex: Female
  Weight: 61 kg

DRUGS (6)
  1. NSAID'S [Concomitant]
  2. MAXALT [Concomitant]
     Dosage: UNK
     Dates: start: 20070101, end: 20080101
  3. VITAMINE C [Concomitant]
  4. YAZ [Suspect]
     Indication: CONTRACEPTION
     Dosage: UNK
     Route: 048
     Dates: start: 20060822, end: 20090308
  5. YAZ [Suspect]
     Dosage: UNK
     Dates: start: 20070321, end: 20071201
  6. FIORICET [Concomitant]
     Dosage: UNK
     Dates: start: 20070101, end: 20080101

REACTIONS (5)
  - CHOLELITHIASIS [None]
  - CHOLECYSTITIS CHRONIC [None]
  - PANCREATITIS [None]
  - GALLBLADDER DISORDER [None]
  - CHOLECYSTITIS [None]
